FAERS Safety Report 14961250 (Version 2)
Quarter: 2018Q3

REPORT INFORMATION
  Report Type: Spontaneous
  Country: US (occurrence: US)
  Receive Date: 20180601
  Receipt Date: 20180821
  Transmission Date: 20181010
  Serious: Yes (Other)
  Sender: FDA-Public Use
  Company Number: US-CIPLA (EU) LIMITED-2018US16671

PATIENT

DRUGS (7)
  1. QUETIAPINE. [Suspect]
     Active Substance: QUETIAPINE
     Indication: MAJOR DEPRESSION
     Dosage: 1200 MG, QD
     Route: 065
  2. BUSPIRONE [Suspect]
     Active Substance: BUSPIRONE HYDROCHLORIDE
     Indication: MAJOR DEPRESSION
     Dosage: 60 MG, QD
     Route: 065
  3. CLOMIPRAMINE [Suspect]
     Active Substance: CLOMIPRAMINE
     Indication: MAJOR DEPRESSION
     Dosage: 300 MG, QD
     Route: 065
  4. BUPROPION. [Suspect]
     Active Substance: BUPROPION
     Indication: MAJOR DEPRESSION
     Dosage: 450 MG, QD
     Route: 065
  5. QUETIAPINE. [Suspect]
     Active Substance: QUETIAPINE
     Dosage: 1000 MG, QD
     Route: 065
  6. QUETIAPINE. [Suspect]
     Active Substance: QUETIAPINE
     Dosage: 300 MG, QHS
     Route: 065
  7. LITHIUM. [Suspect]
     Active Substance: LITHIUM
     Indication: MAJOR DEPRESSION
     Dosage: 600 MG, QHS
     Route: 065

REACTIONS (1)
  - Drug ineffective [Unknown]
